FAERS Safety Report 25077653 (Version 2)
Quarter: 2025Q2

REPORT INFORMATION
  Report Type: Spontaneous
  Country: JP (occurrence: JP)
  Receive Date: 20250314
  Receipt Date: 20250407
  Transmission Date: 20250717
  Serious: Yes (Death, Other)
  Sender: MERCK SHARP & DOHME LLC
  Company Number: JP-009507513-2264423

PATIENT
  Age: 47 Year
  Sex: Female

DRUGS (5)
  1. KEYTRUDA [Suspect]
     Active Substance: PEMBROLIZUMAB
     Indication: Cervix carcinoma stage III
     Route: 041
  2. KEYTRUDA [Suspect]
     Active Substance: PEMBROLIZUMAB
     Indication: Cervix carcinoma stage III
     Route: 041
  3. DOCETAXEL [Suspect]
     Active Substance: DOCETAXEL
     Indication: Cervix carcinoma stage III
  4. BEVACIZUMAB [Suspect]
     Active Substance: BEVACIZUMAB
     Indication: Cervix carcinoma stage III
  5. CYCLOPHOSPHAMIDE [Suspect]
     Active Substance: CYCLOPHOSPHAMIDE
     Indication: Cervix carcinoma stage III

REACTIONS (4)
  - Interstitial lung disease [Recovering/Resolving]
  - Malignant neoplasm progression [Unknown]
  - Death [Fatal]
  - Therapy partial responder [Unknown]
